FAERS Safety Report 15930678 (Version 2)
Quarter: 2019Q1

REPORT INFORMATION
  Report Type: Spontaneous
  Country: US (occurrence: US)
  Receive Date: 20190207
  Receipt Date: 20190210
  Transmission Date: 20190417
  Serious: No
  Sender: FDA-Public Use
  Company Number: PHHY2019US028868

PATIENT
  Sex: Male

DRUGS (1)
  1. GENTEAL MILD TO MODERATE [Suspect]
     Active Substance: HYPROMELLOSE 2910 (4000 MPA.S)
     Indication: PRODUCT USED FOR UNKNOWN INDICATION
     Dosage: UNK
     Route: 047
     Dates: start: 2017

REACTIONS (3)
  - Product design issue [Unknown]
  - Dry eye [Recovered/Resolved]
  - Ocular discomfort [Recovered/Resolved]
